FAERS Safety Report 6569506-3 (Version None)
Quarter: 2010Q1

REPORT INFORMATION
  Report Type: 
  Country: None (occurrence: None)
  Receive Date: 20100204
  Receipt Date: 20100126
  Transmission Date: 20100710
  Serious: Yes (Other)
  Sender: FDA-Public Use
  Company Number: US-ELI_LILLY_AND_COMPANY-US201002000300

PATIENT
  Age: 82 Year
  Sex: Female

DRUGS (4)
  1. FORTEO [Suspect]
     Dates: start: 20070101, end: 20090101
  2. FORTEO [Suspect]
     Dates: start: 20100101
  3. VITAMINS [Concomitant]
     Indication: RESORPTION BONE INCREASED
  4. ACTONEL [Concomitant]

REACTIONS (2)
  - BLINDNESS [None]
  - BONE DENSITY DECREASED [None]
